FAERS Safety Report 21772689 (Version 1)
Quarter: 2022Q4

REPORT INFORMATION
  Report Type: Other
  Country: US (occurrence: None)
  Receive Date: 20221223
  Receipt Date: 20221223
  Transmission Date: 20230113
  Serious: Yes (Other)
  Sender: FDA-Public Use
  Company Number: US-ROCHE-3247812

PATIENT
  Age: 72 Year
  Sex: Female
  Weight: 83.990 kg

DRUGS (5)
  1. OCREVUS [Suspect]
     Active Substance: OCRELIZUMAB
     Indication: Multiple sclerosis
     Route: 042
     Dates: start: 202207
  2. DULOXETINE [Concomitant]
     Active Substance: DULOXETINE
  3. MODAFINIL [Concomitant]
     Active Substance: MODAFINIL
  4. LOSARTAN [Concomitant]
     Active Substance: LOSARTAN
  5. ASPIRIN [Concomitant]
     Active Substance: ASPIRIN

REACTIONS (4)
  - Urinary tract infection [Not Recovered/Not Resolved]
  - Fall [Unknown]
  - Peroneal nerve palsy [Not Recovered/Not Resolved]
  - Balance disorder [Not Recovered/Not Resolved]

NARRATIVE: CASE EVENT DATE: 20220801
